FAERS Safety Report 17205121 (Version 1)
Quarter: 2019Q4

REPORT INFORMATION
  Report Type: Spontaneous
  Country: BR (occurrence: BR)
  Receive Date: 20191227
  Receipt Date: 20191227
  Transmission Date: 20200122
  Serious: Yes (Other)
  Sender: FDA-Public Use
  Company Number: BR-SA-2019SA357299

PATIENT
  Age: 26 Year
  Sex: Male
  Weight: 95 kg

DRUGS (8)
  1. PARACETAMOL [Suspect]
     Active Substance: ACETAMINOPHEN
     Indication: PRODUCT USED FOR UNKNOWN INDICATION
     Dosage: 10000 MG, 1X 500 MG,20 TABLETS; SINGLE DOSE
     Route: 048
     Dates: start: 20191214, end: 20191214
  2. LORATADINE. [Suspect]
     Active Substance: LORATADINE
     Indication: PRODUCT USED FOR UNKNOWN INDICATION
     Dosage: 24 DF, 1X 24 DOSAGE FORMS,24 TABLETS; SINGLE DOSE
     Route: 048
     Dates: start: 20191214, end: 20191214
  3. BUSCOPAN [Suspect]
     Active Substance: BUTYLSCOPOLAMINE BROMIDE
     Indication: PRODUCT USED FOR UNKNOWN INDICATION
     Dosage: 3 DF, 1X 3 DOSAGE FORMS,3 TABLETS; SINGLE DOSE)
     Route: 048
     Dates: start: 20191214, end: 20191214
  4. METAMIZOLE SODIUM [Suspect]
     Active Substance: METAMIZOLE SODIUM
     Indication: PRODUCT USED FOR UNKNOWN INDICATION
     Dosage: 10 DF, 1X 10 DOSAGE FORMS,10 TABLETS; SINGLE DOSE)
     Route: 048
     Dates: start: 20191214, end: 20191214
  5. RANITIDINE. [Suspect]
     Active Substance: RANITIDINE
     Indication: PRODUCT USED FOR UNKNOWN INDICATION
     Dosage: 10 DF, 1X (10 DOSAGE FORMS,10 TABLETS; SINGLE DOSE)
     Route: 048
     Dates: start: 20191214, end: 20191214
  6. METHENAMINE HIPPURATE. [Suspect]
     Active Substance: METHENAMINE HIPPURATE
     Indication: PRODUCT USED FOR UNKNOWN INDICATION
     Dosage: 10 DF, 1X 10 DOSAGE FORMS,10 TABLETS; SINGLE DOSE
     Route: 048
     Dates: start: 20191214, end: 20191214
  7. PREDNISONE. [Suspect]
     Active Substance: PREDNISONE
     Indication: PRODUCT USED FOR UNKNOWN INDICATION
     Dosage: 5 DF, 1X 5 DOSAGE FORMS,5 TABLETS; SINGLE DOSE
     Route: 048
     Dates: start: 20191214, end: 20191214
  8. PANTOPRAZOLE [Suspect]
     Active Substance: PANTOPRAZOLE
     Indication: PRODUCT USED FOR UNKNOWN INDICATION
     Dosage: 42 DF, 1X 42 DOSAGE FORMS,42 TABLETS; SINGLE DOSE
     Route: 048
     Dates: start: 20191214, end: 20191214

REACTIONS (5)
  - Confusional state [Recovered/Resolved]
  - Somnolence [Recovered/Resolved]
  - Intentional overdose [Recovered/Resolved]
  - Vomiting [Recovered/Resolved]
  - Suicide attempt [Recovered/Resolved]

NARRATIVE: CASE EVENT DATE: 20191214
